FAERS Safety Report 24837806 (Version 2)
Quarter: 2025Q3

REPORT INFORMATION
  Report Type: Spontaneous
  Country: EU (occurrence: EU)
  Receive Date: 20250113
  Receipt Date: 20250809
  Transmission Date: 20251021
  Serious: Yes (Hospitalization, Other)
  Sender: ALEXION PHARMACEUTICALS
  Company Number: EU-ASTRAZENECA-202501GLO008119SE

PATIENT
  Age: 90 Year
  Sex: Male

DRUGS (1)
  1. QUETIAPINE [Suspect]
     Active Substance: QUETIAPINE
     Route: 065

REACTIONS (3)
  - Depressed level of consciousness [Unknown]
  - General physical health deterioration [Unknown]
  - Urinary retention [Unknown]

NARRATIVE: CASE EVENT DATE: 20241206
